FAERS Safety Report 6169548-6 (Version None)
Quarter: 2009Q2

REPORT INFORMATION
  Report Type: 
  Country: None (occurrence: None)
  Receive Date: 20090428
  Receipt Date: 20090421
  Transmission Date: 20091009
  Serious: Yes (Other)
  Sender: FDA-Public Use
  Company Number: US-JNJFOC-20060906183

PATIENT
  Sex: Female

DRUGS (2)
  1. RISPERDAL [Suspect]
     Indication: DEPRESSION
  2. RISPERDAL [Suspect]
     Indication: SCHIZOPHRENIA

REACTIONS (5)
  - DYSKINESIA [None]
  - NIGHTMARE [None]
  - SEDATION [None]
  - TREMOR [None]
  - TYPE 2 DIABETES MELLITUS [None]
